FAERS Safety Report 6151901-8 (Version None)
Quarter: 2009Q2

REPORT INFORMATION
  Report Type: 
  Country: None (occurrence: None)
  Receive Date: 20090410
  Receipt Date: 20090326
  Transmission Date: 20091009
  Serious: Yes (Other)
  Sender: FDA-Public Use
  Company Number: GB-MERCK-0811GBR00061M

PATIENT
  Age: 40 Year
  Sex: Female

DRUGS (4)
  1. ISENTRESS [Suspect]
     Indication: HIV INFECTION
     Route: 048
     Dates: start: 20060608
  2. PREZISTA [Suspect]
     Route: 048
     Dates: start: 20060608
  3. ETRAVIRINE [Suspect]
     Route: 048
     Dates: start: 20070713
  4. NORVIR [Suspect]
     Route: 048
     Dates: start: 20070608

REACTIONS (3)
  - ABORTION SPONTANEOUS [None]
  - DRUG EXPOSURE DURING PREGNANCY [None]
  - INCORRECT DOSE ADMINISTERED [None]
